FAERS Safety Report 9411400 (Version 1)
Quarter: 2013Q3

REPORT INFORMATION
  Report Type: Spontaneous
  Country: TR (occurrence: TR)
  Receive Date: 20130722
  Receipt Date: 20130722
  Transmission Date: 20140515
  Serious: Yes (Hospitalization, Other)
  Sender: FDA-Public Use
  Company Number: PHHY2013TR076066

PATIENT
  Age: 24 Year
  Sex: Male

DRUGS (2)
  1. METFORMIN [Suspect]
     Dosage: 16 G, UNK
  2. TELMISARTAN HCTZ [Concomitant]
     Dosage: 2.6G TELM /1.6G HCTZ

REACTIONS (5)
  - Suicide attempt [Recovered/Resolved]
  - PCO2 decreased [Recovered/Resolved]
  - Blood lactic acid increased [Recovered/Resolved]
  - Blood glucose decreased [Recovered/Resolved]
  - Alanine aminotransferase increased [Recovered/Resolved]
